FAERS Safety Report 4665495-7 (Version None)
Quarter: 2005Q2

REPORT INFORMATION
  Report Type: 
  Country: None (occurrence: None)
  Receive Date: 20050519
  Receipt Date: 20050112
  Transmission Date: 20051028
  Serious: No
  Sender: FDA-Public Use
  Company Number: US-BRISTOL-MYERS SQUIBB COMPANY-12824421

PATIENT
  Sex: Female

DRUGS (1)
  1. CYTOXAN [Suspect]

REACTIONS (1)
  - ACCIDENTAL EXPOSURE [None]
